FAERS Safety Report 4746736-4 (Version None)
Quarter: 2005Q3

REPORT INFORMATION
  Report Type: 
  Country: None (occurrence: None)
  Receive Date: 20050817
  Receipt Date: 20050811
  Transmission Date: 20060218
  Serious: Yes (Other)
  Sender: FDA-Public Use
  Company Number: CH-GLAXOSMITHKLINE-B0390663A

PATIENT
  Age: 75 Year
  Sex: Male
  Weight: 75 kg

DRUGS (3)
  1. AUGMENTIN '125' [Suspect]
     Indication: PNEUMONIA BACTERIAL
     Dosage: 2.2G THREE TIMES PER DAY
     Route: 042
     Dates: start: 20050708, end: 20050719
  2. FRAGMIN [Concomitant]
     Dosage: 5000IU PER DAY
     Route: 058
  3. DIPIPERON [Concomitant]
     Dosage: 20MG PER DAY
     Route: 048
     Dates: start: 20050715

REACTIONS (3)
  - BLOOD CREATININE INCREASED [None]
  - NEPHRITIS INTERSTITIAL [None]
  - URINARY CASTS [None]
